FAERS Safety Report 9443469 (Version 4)
Quarter: 2013Q4

REPORT INFORMATION
  Report Type: Spontaneous
  Country: US (occurrence: US)
  Receive Date: 20130806
  Receipt Date: 20131031
  Transmission Date: 20140711
  Serious: Yes (Death)
  Sender: FDA-Public Use
  Company Number: US-JNJFOC-20130800675

PATIENT
  Sex: Male

DRUGS (2)
  1. ZYTIGA [Suspect]
     Indication: PROSTATE CANCER
     Dosage: 250 MG
     Route: 048
     Dates: start: 20120810
  2. ZYTIGA [Suspect]
     Indication: PROSTATE CANCER
     Dosage: (250 MG X 4 TABLETS) ONCE A DAY
     Route: 048
     Dates: start: 20121205

REACTIONS (1)
  - Death [Fatal]
